FAERS Safety Report 4452445-1 (Version None)
Quarter: 2004Q3

REPORT INFORMATION
  Report Type: 
  Country: None (occurrence: None)
  Receive Date: 20040917
  Receipt Date: 20040618
  Transmission Date: 20050211
  Serious: Yes (Death, Hospitalization)
  Sender: FDA-Public Use
  Company Number: PHBS2004NO08115

PATIENT
  Age: 54 Year
  Sex: Female

DRUGS (2)
  1. VOLTAREN [Suspect]
     Indication: TENDONITIS
     Dosage: 50 MG UP TO 3 TIMES DAILY
     Route: 048
     Dates: start: 20040525, end: 20040601
  2. PARACET [Concomitant]
     Indication: TENDONITIS
     Dosage: 1000 MG, BID
     Dates: start: 20040525, end: 20040601

REACTIONS (9)
  - ABDOMINAL PAIN [None]
  - CARDIAC ARREST [None]
  - DYSPNOEA [None]
  - GASTRIC ULCER [None]
  - GASTRIC ULCER PERFORATION [None]
  - PNEUMONIA [None]
  - POSTOPERATIVE INFECTION [None]
  - SEPSIS [None]
  - SURGERY [None]
